FAERS Safety Report 22089691 (Version 1)
Quarter: 2023Q1

REPORT INFORMATION
  Report Type: Spontaneous
  Country: US (occurrence: US)
  Receive Date: 20230313
  Receipt Date: 20230313
  Transmission Date: 20230418
  Serious: Yes (Hospitalization)
  Sender: FDA-Public Use
  Company Number: US-SEBELA IRELAND LIMITED-2023SEB00013

PATIENT
  Age: 64 Year
  Sex: Female

DRUGS (1)
  1. HYDROCORTISONE [Suspect]
     Active Substance: HYDROCORTISONE
     Indication: Chronic fatigue syndrome
     Dosage: 1% CREAM; 2 SQUIRTS, BID; 3 TUBES, 1 OUNCE EA.
     Route: 048

REACTIONS (7)
  - Hypokalaemia [Recovering/Resolving]
  - Hypertension [Recovering/Resolving]
  - Toxicity to various agents [Unknown]
  - Rhabdomyolysis [Unknown]
  - Hyperadrenocorticism [Unknown]
  - Electrocardiogram QT prolonged [Unknown]
  - Electrocardiogram T wave inversion [Unknown]
